FAERS Safety Report 5818171-9 (Version None)
Quarter: 2008Q3

REPORT INFORMATION
  Report Type: 
  Country: None (occurrence: None)
  Receive Date: 20080722
  Receipt Date: 20071106
  Transmission Date: 20090109
  Serious: No
  Sender: FDA-Public Use
  Company Number: US-BAYER-US-2007-042094

PATIENT
  Age: 47 Year
  Sex: Male
  Weight: 102 kg

DRUGS (1)
  1. MAGNEVIST [Suspect]
     Indication: NUCLEAR MAGNETIC RESONANCE IMAGING
     Dosage: UNIT DOSE: 20 ML
     Route: 042
     Dates: start: 20071105, end: 20071105

REACTIONS (4)
  - DYSPNOEA [None]
  - NAUSEA [None]
  - NERVOUSNESS [None]
  - PRURITUS [None]
